FAERS Safety Report 21021995 (Version 1)
Quarter: 2022Q2

REPORT INFORMATION
  Report Type: Spontaneous
  Country: US (occurrence: None)
  Receive Date: 20220628
  Receipt Date: 20220628
  Transmission Date: 20220721
  Serious: No
  Sender: FDA-Public Use
  Company Number: None

PATIENT
  Age: 70 Year
  Sex: Female
  Weight: 56.25 kg

DRUGS (26)
  1. PAXLOVID [Suspect]
     Active Substance: NIRMATRELVIR\RITONAVIR
     Indication: COVID-19
     Dosage: OTHER QUANTITY : 3 TABLET(S);?FREQUENCY : TWICE A DAY;?
     Route: 048
     Dates: start: 20220626, end: 20220627
  2. NEXIUM [Concomitant]
     Active Substance: ESOMEPRAZOLE MAGNESIUM
  3. Flonase spray [Concomitant]
  4. Nizoral shampoo [Concomitant]
  5. BUSPIRONE [Concomitant]
     Active Substance: BUSPIRONE HYDROCHLORIDE
  6. ATORVASTATIN [Concomitant]
     Active Substance: ATORVASTATIN
  7. ESTRADIOL [Concomitant]
     Active Substance: ESTRADIOL
  8. FAMCICLOVIR [Concomitant]
     Active Substance: FAMCICLOVIR
  9. Triamcinole Acetonide cream as needed for skin irritation [Concomitant]
  10. LORATADINE [Concomitant]
     Active Substance: LORATADINE
  11. Ghinko [Concomitant]
  12. COENZYME Q10 [Concomitant]
     Active Substance: DIETARY SUPPLEMENT\UBIDECARENONE
  13. MELATONIN [Concomitant]
     Active Substance: MELATONIN
  14. CALCIUM [Concomitant]
     Active Substance: CALCIUM
  15. MAGNESIUM [Concomitant]
     Active Substance: MAGNESIUM
  16. VITAMIN D3 [Concomitant]
     Active Substance: CHOLECALCIFEROL
  17. TEA [Concomitant]
     Active Substance: TEA LEAF
  18. MIRALAX [Concomitant]
     Active Substance: POLYETHYLENE GLYCOL 3350
  19. DOCUSATE [Concomitant]
     Active Substance: DOCUSATE
  20. BENEFIBER [Concomitant]
     Active Substance: STARCH, WHEAT
  21. VITAMIN B12 [Concomitant]
     Active Substance: CYANOCOBALAMIN
  22. hair, skin and nails [Concomitant]
  23. Women^s 50+ multivit [Concomitant]
  24. LYSINE [Concomitant]
     Active Substance: LYSINE
  25. ADVIL MIGRAINE [Concomitant]
     Active Substance: IBUPROFEN
  26. FAMOTIDINE [Concomitant]
     Active Substance: FAMOTIDINE

REACTIONS (5)
  - Dizziness [None]
  - Presyncope [None]
  - Vomiting [None]
  - Feeding disorder [None]
  - Dysgeusia [None]

NARRATIVE: CASE EVENT DATE: 20220627
